FAERS Safety Report 7280508-4 (Version None)
Quarter: 2011Q1

REPORT INFORMATION
  Report Type: 
  Country: None (occurrence: None)
  Receive Date: 20110208
  Receipt Date: 20110202
  Transmission Date: 20110831
  Serious: Yes (Other)
  Sender: FDA-Public Use
  Company Number: US-AMGEN-USASP2011006248

PATIENT
  Sex: Male

DRUGS (18)
  1. DAPSONE [Concomitant]
  2. HEPARIN [Concomitant]
  3. LACTULOSE [Concomitant]
  4. EPOGEN [Suspect]
     Dosage: 28000 IU, 3 TIMES/WK
     Route: 042
     Dates: start: 20100903
  5. PROSTAT                            /00093602/ [Concomitant]
  6. EPOGEN [Suspect]
     Indication: DIALYSIS
     Dosage: UNK
     Route: 042
     Dates: start: 20100809
  7. NEOMYCIN SULFATE [Concomitant]
  8. PRILOSEC [Concomitant]
  9. ENGERIX-B [Concomitant]
  10. URSODIOL [Concomitant]
  11. ZINC SULFATE [Concomitant]
  12. EPOGEN [Suspect]
  13. INFLUENZA VACCINE [Concomitant]
  14. NADOLOL [Concomitant]
  15. SODIUM BICARBONATE [Concomitant]
  16. VENOFER [Concomitant]
  17. CYCLOSPORINE [Concomitant]
  18. PREDNISONE [Concomitant]

REACTIONS (2)
  - APLASIA PURE RED CELL [None]
  - NO THERAPEUTIC RESPONSE [None]
